FAERS Safety Report 9742526 (Version 2)
Quarter: 2013Q4

REPORT INFORMATION
  Report Type: Spontaneous
  Country: MX (occurrence: MX)
  Receive Date: 20131210
  Receipt Date: 20131224
  Transmission Date: 20140711
  Serious: Yes (Hospitalization, Other)
  Sender: FDA-Public Use
  Company Number: PHHY2013MX144297

PATIENT
  Age: 80 Year
  Sex: Male

DRUGS (2)
  1. CO-DIOVAN [Suspect]
     Dosage: 1 DF (160 MG VALSA/25 MG HCT) DAILY
     Dates: start: 200001
  2. CO-DIOVAN [Suspect]
     Dosage: 1 DF (160 MG VALSA/25 MG HCT) DAILY
     Dates: end: 20131122

REACTIONS (18)
  - Prostatitis [Not Recovered/Not Resolved]
  - Prostatic pain [Not Recovered/Not Resolved]
  - Dysstasia [Not Recovered/Not Resolved]
  - Gait disturbance [Not Recovered/Not Resolved]
  - Infection [Not Recovered/Not Resolved]
  - Urinary tract obstruction [Not Recovered/Not Resolved]
  - Dysuria [Not Recovered/Not Resolved]
  - Insomnia [Not Recovered/Not Resolved]
  - Coronary artery occlusion [Not Recovered/Not Resolved]
  - Meningitis [Not Recovered/Not Resolved]
  - Cataract [Not Recovered/Not Resolved]
  - Vision blurred [Not Recovered/Not Resolved]
  - Renal failure [Not Recovered/Not Resolved]
  - Flatulence [Not Recovered/Not Resolved]
  - Blood cholesterol increased [Not Recovered/Not Resolved]
  - Blood triglycerides increased [Not Recovered/Not Resolved]
  - Urinary tract infection [Not Recovered/Not Resolved]
  - Fatigue [Not Recovered/Not Resolved]
